FAERS Safety Report 23346875 (Version 1)
Quarter: 2023Q4

REPORT INFORMATION
  Report Type: Spontaneous
  Country: US (occurrence: US)
  Receive Date: 20231228
  Receipt Date: 20231228
  Transmission Date: 20240109
  Serious: No
  Sender: FDA-Public Use
  Company Number: US-SA-SAC20231220001169

PATIENT
  Age: 68 Year
  Sex: Female

DRUGS (4)
  1. DUPIXENT [Suspect]
     Active Substance: DUPILUMAB
     Indication: Asthma
     Dosage: 600 MG, 1X
     Route: 058
     Dates: start: 202311, end: 202311
  2. DUPIXENT [Suspect]
     Active Substance: DUPILUMAB
     Dosage: 300 MG, QOW (PER PATIENT DOSE TAKEN, ^END OF 11/2023, 2 WEEKS AFTER DAY 1 DOSE^)
     Route: 058
     Dates: start: 202311, end: 202311
  3. PREDNISONE [Concomitant]
     Active Substance: PREDNISONE
     Indication: Asthma
     Dosage: UNK
     Dates: start: 1996
  4. PREDNISONE [Concomitant]
     Active Substance: PREDNISONE
     Dosage: 5MG

REACTIONS (6)
  - Skin exfoliation [Recovering/Resolving]
  - Dyspnoea [Recovering/Resolving]
  - Skin texture abnormal [Recovering/Resolving]
  - Hypersensitivity [Recovering/Resolving]
  - Injection site bruising [Not Recovered/Not Resolved]
  - Injection site pain [Not Recovered/Not Resolved]

NARRATIVE: CASE EVENT DATE: 20231101
